FAERS Safety Report 14782957 (Version 1)
Quarter: 2018Q2

REPORT INFORMATION
  Report Type: Spontaneous
  Country: DE (occurrence: DE)
  Receive Date: 20180420
  Receipt Date: 20180420
  Transmission Date: 20180711
  Serious: Yes (Other)
  Sender: FDA-Public Use
  Company Number: PHHY2017DE202369

PATIENT
  Sex: Male
  Weight: 71 kg

DRUGS (34)
  1. KYPROLIS [Suspect]
     Active Substance: CARFILZOMIB
     Dosage: 27 MG, QD
     Route: 042
     Dates: start: 20170828, end: 20170829
  2. FENTANYL. [Concomitant]
     Active Substance: FENTANYL
     Indication: ARTHRALGIA
     Dosage: 137 MG, QH
     Route: 065
     Dates: start: 20170405
  3. GRASTOFIL [Concomitant]
     Active Substance: FILGRASTIM
     Indication: PRODUCT USED FOR UNKNOWN INDICATION
     Dosage: 0.5 ML, QD
     Route: 065
     Dates: start: 20170717, end: 20170722
  4. DEXAMETHASONE. [Suspect]
     Active Substance: DEXAMETHASONE
     Indication: PLASMA CELL MYELOMA
     Dosage: 40 MG, UNK
     Route: 065
  5. KYPROLIS [Suspect]
     Active Substance: CARFILZOMIB
     Dosage: 27 MG, QD
     Route: 042
     Dates: start: 20170606, end: 20170607
  6. KYPROLIS [Suspect]
     Active Substance: CARFILZOMIB
     Dosage: 27 MG, QD
     Route: 042
     Dates: start: 20170801, end: 20170801
  7. KYPROLIS [Suspect]
     Active Substance: CARFILZOMIB
     Dosage: 27 MG, QD
     Route: 042
     Dates: start: 20170807, end: 20170808
  8. KYPROLIS [Suspect]
     Active Substance: CARFILZOMIB
     Dosage: 27 MG, QD
     Route: 042
     Dates: start: 20171009, end: 20171010
  9. MACROGOL [Concomitant]
     Active Substance: POLYETHYLENE GLYCOLS
     Indication: CONSTIPATION
     Dosage: UNK
     Route: 065
  10. CALCILAC [Concomitant]
     Active Substance: CALCIUM CARBONATE
     Indication: OSTEOLYSIS
     Dosage: 1254 MG, UNK
     Route: 065
  11. KYPROLIS [Suspect]
     Active Substance: CARFILZOMIB
     Dosage: 27 MG, QD
     Route: 042
     Dates: start: 20170613, end: 20170613
  12. REVLIMID [Suspect]
     Active Substance: LENALIDOMIDE
     Dosage: 25 MG, UNK
     Route: 065
     Dates: start: 20170703, end: 20170703
  13. REVLIMID [Suspect]
     Active Substance: LENALIDOMIDE
     Dosage: 25 MG, UNK
     Route: 065
     Dates: start: 20170801, end: 20170822
  14. KYPROLIS [Suspect]
     Active Substance: CARFILZOMIB
     Dosage: 20 MG, QD
     Route: 042
     Dates: start: 20170515, end: 20170516
  15. KYPROLIS [Suspect]
     Active Substance: CARFILZOMIB
     Dosage: 27 MG, QD
     Route: 042
     Dates: start: 20170522, end: 20170523
  16. KYPROLIS [Suspect]
     Active Substance: CARFILZOMIB
     Dosage: 27 MG, QD
     Route: 042
     Dates: start: 20170814, end: 20170815
  17. KYPROLIS [Suspect]
     Active Substance: CARFILZOMIB
     Dosage: 27 MG, QD
     Route: 042
     Dates: start: 20171023, end: 20171024
  18. LAXOBERAL [Concomitant]
     Active Substance: SODIUM PICOSULFATE
     Dosage: UNK UNK, PRN
     Route: 065
  19. KYPROLIS [Suspect]
     Active Substance: CARFILZOMIB
     Dosage: 27 MG, QD
     Route: 042
     Dates: start: 20171107, end: 20171107
  20. REVLIMID [Suspect]
     Active Substance: LENALIDOMIDE
     Dosage: 25 MG, QD
     Route: 065
     Dates: start: 20170925, end: 20171015
  21. NOVAMINSULFON [Concomitant]
     Active Substance: METAMIZOLE
     Indication: ARTHRALGIA
     Dosage: 4 OT, QID (160, UNK, QID)
     Route: 065
     Dates: start: 20150323
  22. KYPROLIS [Suspect]
     Active Substance: CARFILZOMIB
     Dosage: 27 MG, QD
     Route: 042
     Dates: start: 20170925, end: 20170926
  23. XGEVA [Concomitant]
     Active Substance: DENOSUMAB
     Indication: OSTEOLYSIS
     Dosage: 120 MG, QMO
     Route: 065
     Dates: start: 20170125
  24. KYPROLIS [Suspect]
     Active Substance: CARFILZOMIB
     Indication: PLASMA CELL MYELOMA
     Dosage: 20 MG, QD
     Route: 042
     Dates: start: 20170508, end: 20170509
  25. KYPROLIS [Suspect]
     Active Substance: CARFILZOMIB
     Dosage: 27 MG, QD
     Route: 042
     Dates: start: 20170703, end: 20170703
  26. KYPROLIS [Suspect]
     Active Substance: CARFILZOMIB
     Dosage: 27 MG, QD
     Route: 042
     Dates: start: 20170911, end: 20170912
  27. KYPROLIS [Suspect]
     Active Substance: CARFILZOMIB
     Dosage: 27 MG, QD
     Route: 042
  28. REVLIMID [Suspect]
     Active Substance: LENALIDOMIDE
     Indication: PLASMA CELL MYELOMA
     Dosage: 25 MG, UNK
     Route: 065
     Dates: start: 20170508, end: 20170528
  29. REVLIMID [Suspect]
     Active Substance: LENALIDOMIDE
     Dosage: 25 MG, QD
     Route: 065
     Dates: start: 20170828, end: 20170918
  30. REVLIMID [Suspect]
     Active Substance: LENALIDOMIDE
     Dosage: 25 MG, UNK
     Route: 065
  31. LAXOBERAL [Concomitant]
     Active Substance: SODIUM PICOSULFATE
     Indication: CONSTIPATION
  32. KYPROLIS [Suspect]
     Active Substance: CARFILZOMIB
     Dosage: 27 MG, QD
     Route: 042
     Dates: start: 20170621, end: 20170621
  33. KYPROLIS [Suspect]
     Active Substance: CARFILZOMIB
     Dosage: 27 MG, QD
     Route: 042
     Dates: start: 20170904, end: 20170905
  34. REVLIMID [Suspect]
     Active Substance: LENALIDOMIDE
     Dosage: 25 MG, UNK
     Route: 065
     Dates: start: 20170607, end: 20170627

REACTIONS (1)
  - Neutropenia [Recovered/Resolved]

NARRATIVE: CASE EVENT DATE: 20171017
